FAERS Safety Report 20373582 (Version 8)
Quarter: 2023Q1

REPORT INFORMATION
  Report Type: Report from Study
  Country: CO (occurrence: CO)
  Receive Date: 20220125
  Receipt Date: 20230217
  Transmission Date: 20230418
  Serious: Yes (Other)
  Sender: FDA-Public Use
  Company Number: CO-NOVARTISPH-NVSC2022CO009437

PATIENT
  Age: 42 Year
  Sex: Female

DRUGS (6)
  1. TASIGNA [Interacting]
     Active Substance: NILOTINIB
     Indication: Chronic myeloid leukaemia
     Dosage: 300 MG, Q12H
     Route: 048
     Dates: start: 20211204
  2. TASIGNA [Interacting]
     Active Substance: NILOTINIB
     Dosage: 1 DOSAGE FORM, Q12H
     Route: 048
  3. TASIGNA [Interacting]
     Active Substance: NILOTINIB
     Dosage: 3 DOSAGE FORM, QD (2 IN THE MORNING AND 1 IN THE AFTERNOON)
     Route: 065
  4. TASIGNA [Interacting]
     Active Substance: NILOTINIB
     Dosage: UNK UNK, Q12H
     Route: 048
  5. HYDROXYUREA [Interacting]
     Active Substance: HYDROXYUREA
     Indication: Product used for unknown indication
     Dosage: UNK
     Route: 065
  6. FOLIC ACID [Interacting]
     Active Substance: FOLIC ACID
     Indication: Product used for unknown indication
     Dosage: UNK
     Route: 065

REACTIONS (12)
  - White blood cell count decreased [Unknown]
  - Platelet count decreased [Unknown]
  - White blood cell disorder [Unknown]
  - Viral infection [Unknown]
  - Illness [Unknown]
  - Rhinorrhoea [Unknown]
  - Influenza [Unknown]
  - Dizziness [Unknown]
  - Blood triglycerides increased [Unknown]
  - Product availability issue [Unknown]
  - Labelled drug-food interaction medication error [Unknown]
  - Inappropriate schedule of product administration [Unknown]
